FAERS Safety Report 17949523 (Version 3)
Quarter: 2020Q3

REPORT INFORMATION
  Report Type: Spontaneous
  Country: FR (occurrence: FR)
  Receive Date: 20200625
  Receipt Date: 20200707
  Transmission Date: 20201103
  Serious: Yes (Hospitalization, Other)
  Sender: FDA-Public Use
  Company Number: FR-TAKEDA-2020TUS027746

PATIENT
  Age: 74 Year
  Sex: Male
  Weight: 77.5 kg

DRUGS (4)
  1. VELCADE [Suspect]
     Active Substance: BORTEZOMIB
     Indication: PLASMA CELL MYELOMA
     Dosage: 1.33 MILLIGRAM/SQ. METER, 2/WEEK
     Route: 058
     Dates: start: 202001, end: 20200430
  2. NEOFORDEX [Suspect]
     Active Substance: DEXAMETHASONE ACETATE
     Indication: PLASMA CELL MYELOMA
     Dosage: 40 MILLIGRAM, 2/WEEK
     Route: 048
     Dates: start: 202001, end: 20200430
  3. REVLIMID [Suspect]
     Active Substance: LENALIDOMIDE
     Indication: PLASMA CELL MYELOMA
     Dosage: 50 MILLIGRAM, BID
     Route: 048
     Dates: start: 202001, end: 20200218
  4. VELCADE [Suspect]
     Active Substance: BORTEZOMIB
     Dosage: 1.33 MILLIGRAM/SQ. METER, 1/WEEK
     Route: 058
     Dates: start: 20200512

REACTIONS (2)
  - Weight decreased [Recovering/Resolving]
  - Diabetes mellitus inadequate control [Recovered/Resolved]

NARRATIVE: CASE EVENT DATE: 202001
